FAERS Safety Report 8816894 (Version 1)
Quarter: 2012Q4

REPORT INFORMATION
  Report Type: Spontaneous
  Country: US (occurrence: None)
  Receive Date: 20121002
  Receipt Date: 20121002
  Transmission Date: 20130627
  Serious: Yes (Other)
  Sender: FDA-Public Use
  Company Number: None

PATIENT
  Age: 42 Year
  Sex: Female
  Weight: 66.68 kg

DRUGS (1)
  1. NITROFURANTOIN [Suspect]
     Dosage: 1 tablet 2x per day po
     Route: 048
     Dates: start: 20120817, end: 20120827

REACTIONS (6)
  - Chills [None]
  - Muscular weakness [None]
  - Urinary tract disorder [None]
  - Insomnia [None]
  - Gait disturbance [None]
  - Dementia [None]
